FAERS Safety Report 15019345 (Version 1)
Quarter: 2018Q2

REPORT INFORMATION
  Report Type: Spontaneous
  Country: FR (occurrence: FR)
  Receive Date: 20180617
  Receipt Date: 20180617
  Transmission Date: 20180711
  Serious: Yes (Death)
  Sender: FDA-Public Use
  Company Number: PHHY2018FR023324

PATIENT
  Age: 68 Year
  Sex: Male
  Weight: 107 kg

DRUGS (2)
  1. COSENTYX [Suspect]
     Active Substance: SECUKINUMAB
     Indication: ANKYLOSING SPONDYLITIS
     Dosage: 1 DF, QW
     Route: 058
     Dates: start: 20180112, end: 201802
  2. CELEBREX [Suspect]
     Active Substance: CELECOXIB
     Indication: ANKYLOSING SPONDYLITIS
     Dosage: 1 DF, QD
     Route: 048
     Dates: start: 20180112, end: 20180303

REACTIONS (2)
  - Septic shock [Fatal]
  - Erysipelas [Fatal]

NARRATIVE: CASE EVENT DATE: 20180225
